FAERS Safety Report 6707026-3 (Version None)
Quarter: 2010Q2

REPORT INFORMATION
  Report Type: 
  Country: None (occurrence: None)
  Receive Date: 20100503
  Receipt Date: 20090803
  Transmission Date: 20101027
  Serious: Yes (Death, Other)
  Sender: FDA-Public Use
  Company Number: JP-BAYER-200912217BYL

PATIENT
  Age: 62 Year
  Sex: Male

DRUGS (14)
  1. NEXAVAR [Suspect]
     Indication: HEPATIC CANCER STAGE IV
     Dosage: UNIT DOSE: 200 MG
     Route: 048
     Dates: start: 20090522, end: 20090529
  2. LIVACT [Concomitant]
     Dosage: FROM BEFORE ADMINISTRATION
     Route: 048
     Dates: end: 20090620
  3. LASIX [Concomitant]
     Dosage: FROM BEFORE ADMINISTRATION
     Route: 048
     Dates: end: 20090620
  4. ALDACTONE [Concomitant]
     Dosage: FROM BEFORE ADMINISTRATION
     Route: 048
     Dates: end: 20090620
  5. ADONA [Concomitant]
     Dosage: FROM BEFORE ADMINISTRATION
     Route: 048
     Dates: end: 20090620
  6. TRANSAMIN [Concomitant]
     Dosage: FROM BEFORE ADMINISTRATION
     Route: 048
     Dates: end: 20090620
  7. ALLOID G [Concomitant]
     Dosage: FROM BEFORE ADMINISTRATION
     Route: 048
     Dates: end: 20090620
  8. OMEPRAL [Concomitant]
     Dosage: FROM BEFORE ADMINISTRATION
     Route: 048
     Dates: end: 20090620
  9. FERROMIA [Concomitant]
     Dosage: FROM BEFORE ADMINISTRATION
     Route: 048
     Dates: end: 20090620
  10. VOLTAREN [Concomitant]
     Route: 054
     Dates: start: 20090530, end: 20090620
  11. HYPEN [Concomitant]
     Route: 048
     Dates: start: 20090612, end: 20090620
  12. BIOFERMIN R [Concomitant]
     Route: 048
     Dates: start: 20090529, end: 20090620
  13. DIAMOX SRC [Concomitant]
     Route: 048
     Dates: start: 20090608, end: 20090620
  14. PORTOLAC [Concomitant]
     Route: 048
     Dates: start: 20090612, end: 20090620

REACTIONS (2)
  - HEPATIC NEOPLASM MALIGNANT NON-RESECTABLE [None]
  - LIVER DISORDER [None]
